FAERS Safety Report 10731052 (Version 1)
Quarter: 2015Q1

REPORT INFORMATION
  Report Type: Spontaneous
  Country: US (occurrence: US)
  Receive Date: 20150122
  Receipt Date: 20150122
  Transmission Date: 20150721
  Serious: No
  Sender: FDA-Public Use
  Company Number: US-PFIZER INC-2015027051

PATIENT
  Age: 77 Year
  Sex: Female

DRUGS (7)
  1. CELEBREX [Suspect]
     Active Substance: CELECOXIB
     Dosage: UNK
  2. KEFLEX [Suspect]
     Active Substance: CEPHALEXIN
     Dosage: UNK
  3. CLONAZEPAM. [Suspect]
     Active Substance: CLONAZEPAM
     Dosage: UNK
  4. ZOCOR [Suspect]
     Active Substance: SIMVASTATIN
     Dosage: UNK
  5. CIPRO [Suspect]
     Active Substance: CIPROFLOXACIN HYDROCHLORIDE
     Dosage: UNK
  6. OXYTROL [Suspect]
     Active Substance: OXYBUTYNIN
     Dosage: UNK
  7. PENICILLIN [Suspect]
     Active Substance: PENICILLIN

REACTIONS (2)
  - Drug hypersensitivity [Unknown]
  - Hypersensitivity [Unknown]
